FAERS Safety Report 9003128 (Version 2)
Quarter: 2013Q1

REPORT INFORMATION
  Report Type: Report from Study
  Country: US (occurrence: US)
  Receive Date: 20130108
  Receipt Date: 20130109
  Transmission Date: 20140127
  Serious: Yes (Death, Hospitalization)
  Sender: FDA-Public Use
  Company Number: US-ROCHE-1176447

PATIENT
  Sex: Female

DRUGS (1)
  1. RITUXIMAB [Suspect]
     Indication: NON-HODGKIN^S LYMPHOMA
     Route: 042
     Dates: start: 20120712, end: 20121005

REACTIONS (5)
  - Death [Fatal]
  - Urinary tract infection [Unknown]
  - Pleural effusion [Unknown]
  - Renal failure [Unknown]
  - International normalised ratio increased [Unknown]
